FAERS Safety Report 24454953 (Version 2)
Quarter: 2024Q4

REPORT INFORMATION
  Report Type: Spontaneous
  Country: IT (occurrence: IT)
  Receive Date: 20241017
  Receipt Date: 20241018
  Transmission Date: 20250114
  Serious: No
  Sender: ROCHE
  Company Number: None

PATIENT
  Age: 26 Year
  Sex: Female

DRUGS (1)
  1. RITUXIMAB [Suspect]
     Active Substance: RITUXIMAB
     Indication: Autoimmune disorder
     Dosage: 1000 MG FIRST ADMINISTRATION OF RITUXIMAB
     Route: 042
     Dates: start: 20231207, end: 20231207

REACTIONS (1)
  - Atopy [Recovered/Resolved]

NARRATIVE: CASE EVENT DATE: 20231207
